FAERS Safety Report 8829792 (Version 1)
Quarter: 2012Q4

REPORT INFORMATION
  Report Type: Spontaneous
  Country: US (occurrence: None)
  Receive Date: 20121005
  Receipt Date: 20121005
  Transmission Date: 20130627
  Serious: Yes (Life-Threatening, Hospitalization, Other)
  Sender: FDA-Public Use
  Company Number: None

PATIENT
  Age: 64 Year
  Sex: Female
  Weight: 64.41 kg

DRUGS (1)
  1. POLYETHYLENE GLYCOL 3350 AND ELECTROLYTES [Suspect]
     Indication: COLONOSCOPY
     Dosage: use all supplied  4 doses 2 times
     Route: 048
     Dates: start: 20120906, end: 20120906

REACTIONS (6)
  - Malaise [None]
  - Decreased appetite [None]
  - Tremor [None]
  - Asthenia [None]
  - Hypertension [None]
  - Blood electrolytes decreased [None]
